FAERS Safety Report 7665926-4 (Version None)
Quarter: 2011Q3

REPORT INFORMATION
  Report Type: 
  Country: None (occurrence: None)
  Receive Date: 20110806
  Receipt Date: 20110622
  Transmission Date: 20111222
  Serious: No
  Sender: FDA-Public Use
  Company Number: US-ABBOTT-11P-163-0734257-00

PATIENT
  Sex: Male
  Weight: 78.996 kg

DRUGS (4)
  1. PREVACID [Concomitant]
     Indication: GASTROOESOPHAGEAL REFLUX DISEASE
  2. LISINOPRIL [Concomitant]
     Indication: HYPERTENSION
  3. NIASPAN [Suspect]
     Dates: start: 20110607
  4. NIASPAN [Suspect]
     Indication: BLOOD CHOLESTEROL INCREASED
     Dates: start: 20110509, end: 20110606

REACTIONS (1)
  - HOT FLUSH [None]
